FAERS Safety Report 12569298 (Version 2)
Quarter: 2017Q2

REPORT INFORMATION
  Report Type: Spontaneous
  Country: CA (occurrence: CA)
  Receive Date: 20160719
  Receipt Date: 20170414
  Transmission Date: 20170830
  Serious: Yes (Death, Other)
  Sender: FDA-Public Use
  Company Number: CA-JNJFOC-20160710597

PATIENT
  Age: 28 Year
  Sex: Male

DRUGS (1)
  1. TYLENOL EXTRA STRENGTH [Suspect]
     Active Substance: ACETAMINOPHEN
     Indication: HEADACHE
     Route: 048

REACTIONS (10)
  - Arrhythmia [Fatal]
  - Arteriosclerosis coronary artery [Fatal]
  - Kidney congestion [Fatal]
  - Overdose [Fatal]
  - Vomiting [Unknown]
  - Nausea [Unknown]
  - Pulmonary congestion [Fatal]
  - Hepatic steatosis [Fatal]
  - Brain hypoxia [Fatal]
  - Hepatic congestion [Fatal]

NARRATIVE: CASE EVENT DATE: 2000
